FAERS Safety Report 22293461 (Version 1)
Quarter: 2023Q2

REPORT INFORMATION
  Report Type: Spontaneous
  Country: US (occurrence: None)
  Receive Date: 20230508
  Receipt Date: 20230508
  Transmission Date: 20230721
  Serious: Yes (Other)
  Sender: FDA-Public Use
  Company Number: 2023A104373

PATIENT
  Sex: Female

DRUGS (1)
  1. DURVALUMAB [Suspect]
     Active Substance: DURVALUMAB
     Indication: Lung neoplasm malignant
     Route: 041

REACTIONS (2)
  - Interstitial lung disease [Recovered/Resolved]
  - Renal failure [Unknown]
